FAERS Safety Report 7673492-2 (Version None)
Quarter: 2011Q3

REPORT INFORMATION
  Report Type: 
  Country: None (occurrence: None)
  Receive Date: 20110810
  Receipt Date: 20110804
  Transmission Date: 20111222
  Serious: Yes (Life-Threatening, Other)
  Sender: FDA-Public Use
  Company Number: PHHY2011US71150

PATIENT

DRUGS (1)
  1. PROLEUKIN [Suspect]
     Indication: MALIGNANT MELANOMA
     Dosage: 7 DOSES
     Dates: start: 20110505

REACTIONS (8)
  - MENTAL STATUS CHANGES [None]
  - DECREASED APPETITE [None]
  - METABOLIC ACIDOSIS [None]
  - HALLUCINATION [None]
  - TACHYCARDIA [None]
  - CARDIOMYOPATHY [None]
  - TRANSAMINASES INCREASED [None]
  - EJECTION FRACTION DECREASED [None]
